FAERS Safety Report 23948765 (Version 1)
Quarter: 2024Q2

REPORT INFORMATION
  Report Type: Report from Study
  Country: CA (occurrence: CA)
  Receive Date: 20240607
  Receipt Date: 20240607
  Transmission Date: 20240716
  Serious: Yes (Other)
  Sender: FDA-Public Use
  Company Number: CA-JNJFOC-20231224437

PATIENT
  Age: 27 Year
  Sex: Female
  Weight: 66 kg

DRUGS (7)
  1. DARZALEX [Suspect]
     Active Substance: DARATUMUMAB
     Indication: Aplasia pure red cell
     Dosage: FROM WEEKS 1 TO 8, EVERY 2 WEEKS FROM WEEKS 9 TO 24, AND EVERY 4 WEEKS FROM WEEK 25
     Route: 042
     Dates: start: 20231205
  2. DARZALEX [Suspect]
     Active Substance: DARATUMUMAB
     Dosage: FROM WEEKS 1 TO 8, EVERY 2 WEEKS FROM WEEKS 9 TO 24, AND EVERY 4 WEEKS FROM WEEK 25
     Route: 042
     Dates: start: 20231212
  3. ACYCLOVIR [Concomitant]
     Active Substance: ACYCLOVIR
     Indication: Product used for unknown indication
  4. DIPHENHYDRAMINE [Concomitant]
     Active Substance: DIPHENHYDRAMINE
     Indication: Product used for unknown indication
     Route: 048
  5. ACETAMINOPHEN [Concomitant]
     Active Substance: ACETAMINOPHEN
     Indication: Product used for unknown indication
     Route: 048
  6. DEXAMETHASONE [Concomitant]
     Active Substance: DEXAMETHASONE
     Indication: Product used for unknown indication
     Route: 042
  7. FAMOTIDINE [Concomitant]
     Active Substance: FAMOTIDINE
     Indication: Product used for unknown indication
     Route: 042

REACTIONS (8)
  - Infusion related reaction [Unknown]
  - Nausea [Unknown]
  - Fatigue [Unknown]
  - Sensitive skin [Not Recovered/Not Resolved]
  - Pain of skin [Unknown]
  - Fatigue [Unknown]
  - Nausea [Unknown]
  - Off label use [Unknown]

NARRATIVE: CASE EVENT DATE: 20231205
